FAERS Safety Report 16023169 (Version 1)
Quarter: 2019Q1

REPORT INFORMATION
  Report Type: Spontaneous
  Country: US (occurrence: US)
  Receive Date: 20190301
  Receipt Date: 20190301
  Transmission Date: 20190418
  Serious: Yes (Other)
  Sender: FDA-Public Use
  Company Number: US-BEH-2019099735

PATIENT
  Age: 45 Year
  Sex: Female

DRUGS (1)
  1. PRIVIGEN [Suspect]
     Active Substance: HUMAN IMMUNOGLOBULIN G
     Indication: MYASTHENIA GRAVIS
     Dosage: 25 G, UNK
     Route: 042
     Dates: start: 20180822, end: 20190215

REACTIONS (4)
  - Muscle spasms [Unknown]
  - Drug hypersensitivity [Unknown]
  - Pharyngeal oedema [Unknown]
  - Pruritus [Unknown]

NARRATIVE: CASE EVENT DATE: 20190207
